FAERS Safety Report 7170614-7 (Version None)
Quarter: 2010Q4

REPORT INFORMATION
  Report Type: 
  Country: None (occurrence: None)
  Receive Date: 20101217
  Receipt Date: 20101213
  Transmission Date: 20110411
  Serious: Yes (Other)
  Sender: FDA-Public Use
  Company Number: A0892859A

PATIENT
  Age: 86 Year
  Sex: Female

DRUGS (8)
  1. LOVAZA [Suspect]
     Dosage: 2CAP TWICE PER DAY
     Route: 048
     Dates: start: 20090101
  2. SYNTHROID [Concomitant]
  3. KLOR-CON [Concomitant]
  4. PANTOPRAZOLE [Concomitant]
  5. FEXOFENADINE HCL [Concomitant]
  6. AMLODIPINE [Concomitant]
  7. ISOSORBIDE DINITRATE [Concomitant]
  8. PLAVIX [Concomitant]

REACTIONS (3)
  - CHOKING [None]
  - NAIL DISCOLOURATION [None]
  - PRODUCT QUALITY ISSUE [None]
